FAERS Safety Report 10221052 (Version 1)
Quarter: 2014Q2

REPORT INFORMATION
  Report Type: Report from Study
  Country: US (occurrence: US)
  Receive Date: 20140606
  Receipt Date: 20140606
  Transmission Date: 20141212
  Serious: Yes (Other)
  Sender: FDA-Public Use
  Company Number: US-MUNDIPHARMA DS AND PHARMACOVIGILANCE-USA-2014-0114483

PATIENT
  Sex: Female

DRUGS (1)
  1. BTDS PATCH [Suspect]
     Indication: PRODUCT USED FOR UNKNOWN INDICATION
     Dosage: UNKNOWN
     Route: 062

REACTIONS (9)
  - Abasia [Unknown]
  - Drug ineffective [Unknown]
  - Product adhesion issue [Recovered/Resolved]
  - Pain [Unknown]
  - Muscle spasms [Unknown]
  - Groin pain [Unknown]
  - Musculoskeletal chest pain [Unknown]
  - Pruritus [Recovered/Resolved]
  - Wrong technique in drug usage process [Unknown]
